FAERS Safety Report 5644103-2 (Version None)
Quarter: 2008Q1

REPORT INFORMATION
  Report Type: 
  Country: None (occurrence: None)
  Receive Date: 20080226
  Receipt Date: 20080214
  Transmission Date: 20080703
  Serious: Yes (Other)
  Sender: FDA-Public Use
  Company Number: CHNY2008BR00890

PATIENT
  Age: 18 Year
  Sex: Female
  Weight: 72 kg

DRUGS (1)
  1. CIBALENA (NCH)(CAFFEINE CITRATE, ACETYLSALICYLIC ACID, ACETAMINOPHEN ( [Suspect]
     Indication: HEADACHE
     Dosage: 1 DF, BID, ORAL
     Route: 048
     Dates: start: 20080213, end: 20080213

REACTIONS (2)
  - DRUG EXPOSURE DURING PREGNANCY [None]
  - UTERINE PAIN [None]
